FAERS Safety Report 13455134 (Version 4)
Quarter: 2023Q4

REPORT INFORMATION
  Report Type: Spontaneous
  Country: IT (occurrence: IT)
  Receive Date: 20170419
  Receipt Date: 20231229
  Transmission Date: 20240110
  Serious: Yes (Hospitalization, Other)
  Sender: FDA-Public Use
  Company Number: None

PATIENT
  Age: 53 Year
  Sex: Male

DRUGS (7)
  1. KEPPRA [Suspect]
     Active Substance: LEVETIRACETAM
     Indication: Epilepsy
     Dosage: 1 G DAILY
     Route: 048
     Dates: start: 20120901, end: 20130623
  2. VESANOID [Concomitant]
     Active Substance: TRETINOIN
     Indication: Acute promyelocytic leukaemia
     Dosage: UNKNOWN DOSE
     Dates: start: 20130318, end: 20130520
  3. IDARUBICIN [Concomitant]
     Active Substance: IDARUBICIN
     Indication: Acute promyelocytic leukaemia
     Dosage: 12 MG/M2
     Route: 042
     Dates: start: 20130320, end: 20130509
  4. OXCARBAZEPINE [Concomitant]
     Active Substance: OXCARBAZEPINE
     Indication: Seizure prophylaxis
     Dosage: UNKNOWN DOSE
  5. VINCRISTINE [Concomitant]
     Active Substance: VINCRISTINE
     Indication: Oligoastrocytoma
     Dosage: UNKNOWN DOSE
  6. PROCARBAZINE [Concomitant]
     Active Substance: PROCARBAZINE
     Indication: Oligoastrocytoma
     Dosage: UNKNOWN DOSE
  7. LOMUSTINE [Concomitant]
     Active Substance: LOMUSTINE
     Indication: Oligoastrocytoma
     Dosage: UNKNOWN DOSE

REACTIONS (6)
  - Neutropenia [Recovering/Resolving]
  - Infection [Unknown]
  - Large granular lymphocytosis [Unknown]
  - Lymphocytosis [Unknown]
  - Disease progression [Unknown]
  - Immune thrombocytopenia [Unknown]

NARRATIVE: CASE EVENT DATE: 20130618
